FAERS Safety Report 10381513 (Version 1)
Quarter: 2014Q3

REPORT INFORMATION
  Report Type: Spontaneous
  Country: US (occurrence: US)
  Receive Date: 20140813
  Receipt Date: 20140813
  Transmission Date: 20150326
  Serious: Yes (Other)
  Sender: FDA-Public Use
  Company Number: US-TEVA-500543USA

PATIENT
  Sex: Female

DRUGS (1)
  1. COPAXONE [Suspect]
     Active Substance: GLATIRAMER ACETATE
     Indication: PRODUCT USED FOR UNKNOWN INDICATION

REACTIONS (11)
  - Pain in extremity [Unknown]
  - Eye disorder [Unknown]
  - Eye irritation [Unknown]
  - Multiple sclerosis relapse [Unknown]
  - Arthralgia [Unknown]
  - Eye pain [Unknown]
  - Feeling abnormal [Unknown]
  - Depression [Unknown]
  - Injection site pain [Unknown]
  - Injection site swelling [Unknown]
  - Inappropriate schedule of drug administration [Unknown]
